FAERS Safety Report 22661701 (Version 1)
Quarter: 2023Q2

REPORT INFORMATION
  Report Type: Spontaneous
  Country: None (occurrence: JP)
  Receive Date: 20230630
  Receipt Date: 20230630
  Transmission Date: 20230721
  Serious: Yes (Hospitalization)
  Sender: FDA-Public Use
  Company Number: JP-Harrow Eye-2143300

PATIENT

DRUGS (1)
  1. IOPIDINE [Suspect]
     Active Substance: APRACLONIDINE HYDROCHLORIDE
     Route: 061
     Dates: start: 2023

REACTIONS (2)
  - Nausea [Unknown]
  - Blood pressure increased [Recovered/Resolved]
